FAERS Safety Report 10037085 (Version 1)
Quarter: 2014Q1

REPORT INFORMATION
  Report Type: Spontaneous
  Country: US (occurrence: None)
  Receive Date: 20140325
  Receipt Date: 20140325
  Transmission Date: 20141002
  Serious: Yes (Other)
  Sender: FDA-Public Use
  Company Number: None

PATIENT
  Age: 64 Year
  Sex: Male
  Weight: 68.04 kg

DRUGS (1)
  1. ADVAIR DISKUS [Suspect]
     Indication: CHRONIC OBSTRUCTIVE PULMONARY DISEASE
     Dosage: FLUTICASONE 250 MCG?TWICE DAILY?INHALATION
     Route: 055
     Dates: start: 20140205, end: 20140322

REACTIONS (3)
  - Toothache [None]
  - Product label issue [None]
  - Economic problem [None]
